FAERS Safety Report 25733027 (Version 2)
Quarter: 2025Q3

REPORT INFORMATION
  Report Type: Spontaneous
  Country: US (occurrence: US)
  Receive Date: 20250828
  Receipt Date: 20250923
  Transmission Date: 20251021
  Serious: No
  Sender: NOVARTIS
  Company Number: US-002147023-NVSC2025US130622

PATIENT
  Age: 61 Year
  Sex: Female
  Weight: 176.6 kg

DRUGS (5)
  1. COSENTYX [Suspect]
     Active Substance: SECUKINUMAB
     Indication: Psoriasis
     Route: 058
     Dates: start: 20250526
  2. FLUOCINOLONE [Concomitant]
     Active Substance: FLUOCINOLONE
     Indication: Product used for unknown indication
     Route: 065
     Dates: start: 20250523
  3. BETAMETHASONE VALERATE [Concomitant]
     Active Substance: BETAMETHASONE VALERATE
     Indication: Product used for unknown indication
     Route: 065
     Dates: start: 20250523
  4. BETAMETHASONE DIPROPIONATE [Concomitant]
     Active Substance: BETAMETHASONE DIPROPIONATE
     Indication: Product used for unknown indication
     Route: 065
     Dates: start: 20250523
  5. METHOTREXATE [Concomitant]
     Active Substance: METHOTREXATE
     Indication: Product used for unknown indication
     Route: 065

REACTIONS (1)
  - Drug ineffective [Unknown]

NARRATIVE: CASE EVENT DATE: 20250815
